FAERS Safety Report 12353225 (Version 1)
Quarter: 2016Q2

REPORT INFORMATION
  Report Type: Spontaneous
  Country: KR (occurrence: KR)
  Receive Date: 20160510
  Receipt Date: 20160510
  Transmission Date: 20160815
  Serious: Yes (Other)
  Sender: FDA-Public Use
  Company Number: KR-VALIDUS PHARMACEUTICALS LLC-KR-2016VAL001490

PATIENT
  Age: 65 Year
  Sex: Male

DRUGS (6)
  1. METFORMIN HYDROCHLORIDE W/VILDAGLIPTIN [Suspect]
     Active Substance: METFORMIN HYDROCHLORIDE\VILDAGLIPTIN
     Indication: PRODUCT USED FOR UNKNOWN INDICATION
     Dosage: UNK
  2. CEFOTAXIME SODIUM [Suspect]
     Active Substance: CEFOTAXIME SODIUM
     Indication: PRODUCT USED FOR UNKNOWN INDICATION
     Dosage: 6 G, UNK
     Route: 042
  3. VALSARTAN. [Suspect]
     Active Substance: VALSARTAN
     Indication: PRODUCT USED FOR UNKNOWN INDICATION
     Dosage: 80 MG, QD
  4. PIOGLITAZONE. [Suspect]
     Active Substance: PIOGLITAZONE
     Indication: PRODUCT USED FOR UNKNOWN INDICATION
     Dosage: 30 MG, UNK
  5. METRONIDAZOLE. [Suspect]
     Active Substance: METRONIDAZOLE
     Indication: PRODUCT USED FOR UNKNOWN INDICATION
     Dosage: 1.5 G, QD
     Route: 042
  6. PREGABALIN. [Suspect]
     Active Substance: PREGABALIN
     Indication: PRODUCT USED FOR UNKNOWN INDICATION
     Dosage: 150 MG, UNK

REACTIONS (12)
  - Vestibular disorder [Recovering/Resolving]
  - Balance disorder [Recovered/Resolved]
  - Eye movement disorder [Recovering/Resolving]
  - Drug interaction [Recovering/Resolving]
  - Vomiting [Recovered/Resolved]
  - Paresis [Recovering/Resolving]
  - Dizziness [Recovered/Resolved]
  - Vestibular function test abnormal [Recovering/Resolving]
  - Nystagmus [Recovering/Resolving]
  - Nervous system disorder [Recovering/Resolving]
  - Ataxia [Recovering/Resolving]
  - Hyporeflexia [Recovering/Resolving]
